FAERS Safety Report 15710116 (Version 1)
Quarter: 2018Q4

REPORT INFORMATION
  Report Type: Spontaneous
  Country: DE (occurrence: DE)
  Receive Date: 20181211
  Receipt Date: 20181211
  Transmission Date: 20190205
  Serious: Yes (Life-Threatening)
  Sender: FDA-Public Use
  Company Number: DE-DENTSPLY-2018SCDP000523

PATIENT
  Age: 86 Year
  Sex: Female

DRUGS (25)
  1. DIAZEPAM. [Suspect]
     Active Substance: DIAZEPAM
     Indication: SEDATION
     Dosage: 120
     Route: 042
     Dates: start: 20000913, end: 20000913
  2. EUGLUCON [Suspect]
     Active Substance: GLYBURIDE
     Indication: DIABETES MELLITUS
     Dosage: UNK
     Route: 048
     Dates: start: 20000820, end: 20000917
  3. MONO MACK [Concomitant]
     Active Substance: ISOSORBIDE MONONITRATE
     Indication: ANGINA PECTORIS
     Dosage: UNK
     Route: 048
     Dates: start: 20000820, end: 20000917
  4. DUROGESIC [Concomitant]
     Active Substance: FENTANYL
     Indication: PAIN
     Dosage: 1 DF, (250)
     Route: 062
     Dates: start: 20000820, end: 20000916
  5. TAVEGIL                            /00137201/ [Concomitant]
     Active Substance: CLEMASTINE FUMARATE
     Indication: PEMPHIGOID
     Dosage: 2 DF, UNK
     Route: 048
     Dates: start: 20000820, end: 20000828
  6. VIOXX [Suspect]
     Active Substance: ROFECOXIB
     Indication: RHEUMATIC DISORDER
     Dosage: 25 MG, UNK
     Route: 048
     Dates: start: 20000907, end: 20000917
  7. NOCTAMID [Suspect]
     Active Substance: LORMETAZEPAM
     Indication: SEDATION
     Dosage: 2 DF, QD
     Route: 048
     Dates: start: 20000913, end: 20000913
  8. NOREPINEPHRINE. [Suspect]
     Active Substance: NOREPINEPHRINE
     Indication: CORONARY ARTERY DISEASE
     Dosage: UNK
     Route: 042
     Dates: start: 20000913, end: 20000913
  9. CATAPRESAN                         /00171101/ [Suspect]
     Active Substance: CLONIDINE
     Indication: CORONARY ARTERY DISEASE
     Dosage: UNK
     Route: 042
     Dates: start: 20000913, end: 20000913
  10. ASPIRIN                            /00002701/ [Suspect]
     Active Substance: ASPIRIN
     Indication: COAGULOPATHY
     Dosage: 100 MG, QD
     Route: 048
     Dates: start: 20000914, end: 20000917
  11. NOVALGIN (METAMIZOLE SODIUM) [Suspect]
     Active Substance: METAMIZOLE SODIUM
     Indication: PAIN
     Dosage: 20 GTT (DAILY DOSE)
     Route: 048
     Dates: start: 20000820, end: 20000917
  12. PLAVIX [Suspect]
     Active Substance: CLOPIDOGREL BISULFATE
     Indication: COAGULOPATHY
     Dosage: 75 MG, UNK
     Route: 048
     Dates: start: 20000913, end: 20000917
  13. GLUCOSE [Concomitant]
     Active Substance: DEXTROSE
     Indication: CARDIOVASCULAR DISORDER
     Dosage: UNK
     Route: 042
     Dates: start: 20000913, end: 20000913
  14. FRAGMIN P [Concomitant]
     Active Substance: DALTEPARIN SODIUM
     Indication: COAGULOPATHY
     Dosage: UNK
     Route: 058
     Dates: start: 20000820, end: 20000917
  15. ORTHO-GYNEST [Concomitant]
     Indication: VULVOVAGINAL DISORDER
     Dosage: 1 DF, UNK
     Route: 067
     Dates: start: 20000820, end: 20000906
  16. CORVATON [Concomitant]
     Active Substance: MOLSIDOMINE
     Indication: CORONARY ARTERY DISEASE
     Dosage: 1 DF, UNK
     Route: 048
     Dates: start: 20000820, end: 20000914
  17. XYLOCAINE [Suspect]
     Active Substance: LIDOCAINE HYDROCHLORIDE
     Indication: LOCAL ANAESTHESIA
     Dosage: UNK
     Route: 058
     Dates: start: 20000913, end: 20000913
  18. CALCIUM [Concomitant]
     Active Substance: CALCIUM
     Indication: OSTEOPOROSIS
     Dosage: 1 DF, (245)
     Route: 048
     Dates: start: 20000820, end: 20000917
  19. DECORTIN [Concomitant]
     Active Substance: PREDNISONE
     Indication: DERMATITIS BULLOUS
     Dosage: (245)
     Route: 048
     Dates: start: 20000820, end: 20000917
  20. UNAT                               /01036501/ [Concomitant]
     Active Substance: TORSEMIDE
     Indication: CARDIAC FAILURE
     Dosage: 5 MG
     Route: 048
     Dates: start: 20000820, end: 20000917
  21. ANTRAMUPS [Concomitant]
     Active Substance: OMEPRAZOLE
     Indication: PROPHYLAXIS AGAINST GASTROINTESTINAL ULCER
     Dosage: 20 MG, UNK
     Route: 048
     Dates: start: 20000820, end: 20000917
  22. INSULIN [Concomitant]
     Active Substance: INSULIN NOS
     Indication: DIABETES MELLITUS
     Dosage: UNK
     Route: 050
     Dates: start: 20000820, end: 20000917
  23. RINGER^S SOLUTION                  /03112001/ [Concomitant]
     Indication: ELECTROLYTE DEPLETION
     Dosage: UNK
     Route: 042
     Dates: start: 20000913, end: 20000914
  24. ASPIRIN                            /00002701/ [Suspect]
     Active Substance: ASPIRIN
     Dosage: 100 MG, QD
     Route: 048
     Dates: start: 20000828, end: 20000831
  25. COTRIM [Concomitant]
     Active Substance: SULFAMETHOXAZOLE\TRIMETHOPRIM
     Indication: URINARY TRACT INFECTION
     Dosage: 1 DF, UNK
     Route: 048
     Dates: start: 20000916, end: 20000917

REACTIONS (6)
  - Generalised erythema [None]
  - Mouth ulceration [None]
  - Blister [None]
  - Toxic epidermal necrolysis [None]
  - Conjunctivitis [None]
  - Genital erosion [None]

NARRATIVE: CASE EVENT DATE: 20000916
